FAERS Safety Report 9564129 (Version 2)
Quarter: 2013Q4

REPORT INFORMATION
  Report Type: Spontaneous
  Country: US (occurrence: US)
  Receive Date: 20130929
  Receipt Date: 20131005
  Transmission Date: 20140711
  Serious: Yes (Death)
  Sender: FDA-Public Use
  Company Number: US-JNJFOC-20130913329

PATIENT
  Age: 72 Year
  Sex: Female

DRUGS (3)
  1. TYLENOL [Suspect]
     Route: 048
  2. TYLENOL [Suspect]
     Indication: SLEEP DISORDER THERAPY
     Dosage: 1 TO 2 EVERY NIGHT
     Route: 048
     Dates: start: 2007, end: 20110913
  3. NORMAL SALINE [Concomitant]
     Indication: FLUID REPLACEMENT
     Route: 065

REACTIONS (7)
  - Hepatic cirrhosis [Fatal]
  - Sepsis [Fatal]
  - Renal failure [Fatal]
  - Coagulopathy [Unknown]
  - Ascites [Unknown]
  - Somnolence [Unknown]
  - Product quality issue [Unknown]
